FAERS Safety Report 5212965-9 (Version None)
Quarter: 2007Q1

REPORT INFORMATION
  Report Type: 
  Country: None (occurrence: None)
  Receive Date: 20070117
  Receipt Date: 20070117
  Transmission Date: 20070707
  Serious: Yes (Hospitalization)
  Sender: FDA-Public Use
  Company Number: None

PATIENT
  Age: 74 Year
  Sex: Male

DRUGS (8)
  1. CIPROFLOXACIN 400 MG IV Q12H [Suspect]
     Indication: PSEUDOMONAL BACTERAEMIA
     Dates: start: 20061017, end: 20061022
  2. DEXTROSE/NACL/KCL [Concomitant]
  3. FELODIPINE [Concomitant]
  4. FLUTICASONE/SALMETEROL [Concomitant]
  5. FOSINOPRIL SODIUM [Concomitant]
  6. LEVALBUTEROL HCL [Concomitant]
  7. LEVETIRACETAM [Concomitant]
  8. METOPROLOL TARTRATE [Concomitant]

REACTIONS (2)
  - LABORATORY TEST ABNORMAL [None]
  - NEPHRITIS INTERSTITIAL [None]
